FAERS Safety Report 18230068 (Version 2)
Quarter: 2020Q3

REPORT INFORMATION
  Report Type: Spontaneous
  Country: IE (occurrence: IE)
  Receive Date: 20200903
  Receipt Date: 20200930
  Transmission Date: 20201103
  Serious: Yes (Other)
  Sender: FDA-Public Use
  Company Number: IE-GE HEALTHCARE LIFE SCIENCES-2020CSU003947

PATIENT

DRUGS (2)
  1. OMNIPAQUE [Suspect]
     Active Substance: IOHEXOL
     Indication: CARDIAC STRESS TEST ABNORMAL
  2. OMNIPAQUE [Suspect]
     Active Substance: IOHEXOL
     Indication: ANGIOCARDIOGRAM
     Dosage: 85 ML AT 5 ML/SEC, ONCE
     Route: 042
     Dates: start: 20200827, end: 20200827

REACTIONS (9)
  - Paraesthesia oral [Recovering/Resolving]
  - Rash [Recovering/Resolving]
  - Conjunctivitis [Recovering/Resolving]
  - Erythema [Recovering/Resolving]
  - Facial paralysis [Recovering/Resolving]
  - Swelling face [Recovering/Resolving]
  - Fatigue [Recovering/Resolving]
  - Periorbital swelling [Recovering/Resolving]
  - Cough [Recovering/Resolving]

NARRATIVE: CASE EVENT DATE: 20200827
